FAERS Safety Report 19731326 (Version 1)
Quarter: 2021Q3

REPORT INFORMATION
  Report Type: Other
  Country: NL (occurrence: NL)
  Receive Date: 20210821
  Receipt Date: 20210821
  Transmission Date: 20211014
  Serious: Yes (Hospitalization)
  Sender: FDA-Public Use
  Company Number: NL-ALSI-2021000243

PATIENT
  Age: 22 Year
  Sex: Female

DRUGS (1)
  1. NITROUS OXIDE. [Suspect]
     Active Substance: NITROUS OXIDE
     Indication: DRUG ABUSE
     Route: 055

REACTIONS (8)
  - Polyneuropathy [Recovering/Resolving]
  - Splenic infarction [Unknown]
  - Intestinal angioedema [Unknown]
  - Splenic vein thrombosis [Unknown]
  - Abdominal pain [Unknown]
  - Mesenteric vein thrombosis [Unknown]
  - Portal vein thrombosis [Unknown]
  - Ascites [Unknown]
